FAERS Safety Report 9017773 (Version 5)
Quarter: 2013Q2

REPORT INFORMATION
  Report Type: Spontaneous
  Country: US (occurrence: US)
  Receive Date: 20130118
  Receipt Date: 20130415
  Transmission Date: 20140414
  Serious: Yes (Hospitalization)
  Sender: FDA-Public Use
  Company Number: US-BIOGENIDEC-2013BI004223

PATIENT
  Sex: Female

DRUGS (2)
  1. TYSABRI [Suspect]
     Indication: MULTIPLE SCLEROSIS
     Route: 042
     Dates: start: 20100125
  2. STEROIDS (NOS) [Concomitant]

REACTIONS (5)
  - Cardiac murmur [Not Recovered/Not Resolved]
  - Neurogenic bladder [Recovered/Resolved]
  - Cervical dysplasia [Recovered/Resolved]
  - Salpingo-oophorectomy unilateral [Recovered/Resolved]
  - Lethargy [Not Recovered/Not Resolved]
